FAERS Safety Report 21158835 (Version 1)
Quarter: 2022Q3

REPORT INFORMATION
  Report Type: Report from Study
  Country: AT (occurrence: AT)
  Receive Date: 20220802
  Receipt Date: 20220802
  Transmission Date: 20221027
  Serious: Yes (Hospitalization)
  Sender: FDA-Public Use
  Company Number: AT-CELLTRION INC.-2021AT017504

PATIENT

DRUGS (6)
  1. TRASTUZUMAB [Suspect]
     Active Substance: TRASTUZUMAB
     Indication: HER2 positive breast cancer
     Dosage: LAST DOSE BEFORE EVENT WAS ON 26/JAN/2022 TOTAL DOSE OF LAST ADMINISTRATION BEFORE SAE ONSET 350 MG
     Route: 042
     Dates: start: 20210520, end: 20220126
  2. TRASTUZUMAB [Suspect]
     Active Substance: TRASTUZUMAB
     Dosage: 8 MG/KG EVERY 3 WEEKS, LAST DOSE BEFORE EVENT WAS ON 04/NOV/2021 TOTAL DOSE OF LAST ADMINISTRATION B
     Route: 042
     Dates: start: 20210520, end: 20220126
  3. ATEZOLIZUMAB [Suspect]
     Active Substance: ATEZOLIZUMAB
     Indication: HER2 positive breast cancer
     Dosage: 1200 MG, EVERY 3 WEEK (LAST DOSE BEFORE EVENT WAS ON 04/NOV/2021); TOTAL DOSE OF LAST ADMINISTARTION
     Route: 041
     Dates: start: 20210520, end: 20220126
  4. ATEZOLIZUMAB [Suspect]
     Active Substance: ATEZOLIZUMAB
     Dosage: LAST DOSE BEFORE EVENT WAS ON 26/JAN/2022 TOTAL DOSE OF LAST ADMINISTRATION BEFORE SAE ONSET 1200MG
     Route: 042
     Dates: start: 20210520, end: 20220126
  5. PERTUZUMAB [Suspect]
     Active Substance: PERTUZUMAB
     Indication: HER2 positive breast cancer
     Dosage: 840 MG EVERY 3 WEEKS, LAST DOSE BEFORE EVENT WAS ON 04/NOV/2021 TOTAL DOSE OF LAST ADMINISTRATION BE
     Route: 042
     Dates: start: 20210520, end: 20220126
  6. PERTUZUMAB [Suspect]
     Active Substance: PERTUZUMAB
     Dosage: LAST DOSE BEFORE EVENT WAS ON 26/JAN/2022 TOTAL DOSE OF LAST ADMINISTRATION BEFORE SAE ONSET: 420 MG
     Route: 042
     Dates: start: 20210520, end: 20220126

REACTIONS (4)
  - Gastritis [Recovered/Resolved]
  - Ejection fraction abnormal [Recovered/Resolved]
  - Left ventricular dysfunction [Not Recovered/Not Resolved]
  - Ejection fraction decreased [Recovered/Resolved]

NARRATIVE: CASE EVENT DATE: 20211125
